FAERS Safety Report 17814165 (Version 8)
Quarter: 2021Q2

REPORT INFORMATION
  Report Type: Report from Study
  Country: NL (occurrence: NL)
  Receive Date: 20200521
  Receipt Date: 20210517
  Transmission Date: 20210716
  Serious: Yes (Hospitalization, Other)
  Sender: FDA-Public Use
  Company Number: NL-SEATTLE GENETICS-2020SGN02228

PATIENT
  Age: 32 Year
  Sex: Female

DRUGS (9)
  1. RITUXIMAB. [Suspect]
     Active Substance: RITUXIMAB
     Indication: B-CELL LYMPHOMA
     Dosage: 600 MILLIGRAM
     Route: 065
     Dates: start: 20200502
  2. DEXAMETHASONE. [Suspect]
     Active Substance: DEXAMETHASONE
     Indication: B-CELL LYMPHOMA
     Dosage: 40 MILLIGRAM
     Route: 065
     Dates: start: 20200502
  3. PEGFILGRASTIM [Suspect]
     Active Substance: PEGFILGRASTIM
     Dosage: 600 MG
     Route: 065
     Dates: start: 20200630
  4. CYTARABINE. [Suspect]
     Active Substance: CYTARABINE
     Indication: B-CELL LYMPHOMA
     Dosage: 7000 MILLIGRAM
     Route: 065
     Dates: start: 20200504
  5. CYTARABINE. [Suspect]
     Active Substance: CYTARABINE
     Dosage: 6800 MILLIGRAM
     Route: 065
     Dates: start: 20200530
  6. BRENTUXIMAB VEDOTIN?MPI [Suspect]
     Active Substance: BRENTUXIMAB VEDOTIN
     Indication: B-CELL LYMPHOMA
     Dosage: 115 MILLIGRAM
     Route: 065
     Dates: start: 20200502
  7. BRENTUXIMAB VEDOTIN?MPI [Suspect]
     Active Substance: BRENTUXIMAB VEDOTIN
     Dosage: 111 MG
     Route: 065
     Dates: start: 20200528
  8. CISPLATIN. [Suspect]
     Active Substance: CISPLATIN
     Indication: B-CELL LYMPHOMA
     Dosage: 170 MILLIGRAM
     Route: 065
     Dates: start: 20200503
  9. PEGFILGRASTIM [Suspect]
     Active Substance: PEGFILGRASTIM
     Indication: B-CELL LYMPHOMA
     Dosage: 6 MG
     Route: 065
     Dates: start: 20200506

REACTIONS (5)
  - Epistaxis [Recovered/Resolved]
  - Abdominal pain upper [Not Recovered/Not Resolved]
  - Neutropenic colitis [Recovered/Resolved]
  - Thrombocytopenia [Not Recovered/Not Resolved]
  - Febrile neutropenia [Recovered/Resolved]

NARRATIVE: CASE EVENT DATE: 20200513
